FAERS Safety Report 14944831 (Version 1)
Quarter: 2018Q2

REPORT INFORMATION
  Report Type: Spontaneous
  Country: FR (occurrence: FR)
  Receive Date: 20180529
  Receipt Date: 20180529
  Transmission Date: 20180711
  Serious: Yes (Hospitalization)
  Sender: FDA-Public Use
  Company Number: FR-MERCK KGAA-2048557

PATIENT
  Age: 62 Year
  Sex: Female

DRUGS (4)
  1. CARDENSIEL [Concomitant]
     Active Substance: BISOPROLOL FUMARATE
  2. NOVOTHYROX [Suspect]
     Active Substance: LEVOTHYROXINE SODIUM
     Indication: PRODUCT USED FOR UNKNOWN INDICATION
     Dates: start: 201705, end: 201710
  3. VENTOLINE [Concomitant]
     Active Substance: ALBUTEROL
  4. CONTRAMAL [Concomitant]
     Active Substance: TRAMADOL HYDROCHLORIDE

REACTIONS (12)
  - Mobility decreased [None]
  - Vertigo [None]
  - Social avoidant behaviour [None]
  - Pain [None]
  - Marital problem [None]
  - Diarrhoea [None]
  - Self esteem decreased [None]
  - Depressed mood [None]
  - Fatigue [None]
  - Loss of personal independence in daily activities [None]
  - Weight abnormal [None]
  - Crying [None]

NARRATIVE: CASE EVENT DATE: 2017
